FAERS Safety Report 7580441-4 (Version None)
Quarter: 2011Q2

REPORT INFORMATION
  Report Type: 
  Country: None (occurrence: None)
  Receive Date: 20110629
  Receipt Date: 20110608
  Transmission Date: 20111010
  Serious: Yes (Hospitalization, Congenital Anomaly)
  Sender: FDA-Public Use
  Company Number: A0874690A

PATIENT
  Sex: Male

DRUGS (5)
  1. PAXIL [Suspect]
     Indication: BIPOLAR DISORDER
     Dosage: 20MG PER DAY
     Route: 064
  2. ABILIFY [Concomitant]
  3. TRAZODONE HCL [Concomitant]
  4. LAMICTAL [Concomitant]
  5. SEROQUEL [Concomitant]

REACTIONS (6)
  - PLAGIOCEPHALY [None]
  - NEUROMYOPATHY [None]
  - CRANIOSYNOSTOSIS [None]
  - HEAD DEFORMITY [None]
  - TORTICOLLIS [None]
  - DRUG EXPOSURE DURING PREGNANCY [None]
